FAERS Safety Report 8539970-9 (Version None)
Quarter: 2012Q3

REPORT INFORMATION
  Report Type: 
  Country: None (occurrence: None)
  Receive Date: 20120726
  Receipt Date: 20120719
  Transmission Date: 20120928
  Serious: Yes (Other)
  Sender: FDA-Public Use
  Company Number: PHHY2012TW062248

PATIENT
  Age: 34 Year
  Sex: Female

DRUGS (4)
  1. PACLITAXEL [Concomitant]
  2. CISPLATIN [Concomitant]
  3. VINORELBINE [Suspect]
     Indication: BREAST CANCER METASTATIC
     Dosage: 25 MG/M2, QD
  4. GEMCITABINE [Concomitant]

REACTIONS (12)
  - POSTERIOR REVERSIBLE ENCEPHALOPATHY SYNDROME [None]
  - HYPERCALCAEMIA [None]
  - ALTERED STATE OF CONSCIOUSNESS [None]
  - OXYGEN SATURATION DECREASED [None]
  - HYPERPHOSPHATAEMIA [None]
  - HYPERTENSION [None]
  - VOMITING [None]
  - DIZZINESS [None]
  - GRAND MAL CONVULSION [None]
  - NAUSEA [None]
  - GAZE PALSY [None]
  - HEADACHE [None]
